FAERS Safety Report 4576356-6 (Version None)
Quarter: 2005Q1

REPORT INFORMATION
  Report Type: 
  Country: None (occurrence: None)
  Receive Date: 20050207
  Receipt Date: 20050126
  Transmission Date: 20050727
  Serious: Yes (Hospitalization, Other)
  Sender: FDA-Public Use
  Company Number: NLWYE371226JAN05

PATIENT
  Age: 72 Year
  Sex: Male

DRUGS (7)
  1. EFEXOR XR        (VENLAFAXINE HYDROCHLORIDE XR) [Suspect]
     Dosage: 1 TIME 300 MG ORAL
     Route: 048
     Dates: start: 20041110, end: 20041110
  2. PARNATE [Suspect]
     Indication: DEPRESSION
     Dosage: 30 MG 2X PER 1 DAY ORAL
     Route: 048
     Dates: start: 20040801
  3. ASCAL CARDIO              (CARBASALATE CALCIUM) [Concomitant]
  4. OXAZEPAM [Concomitant]
  5. BECONASE               (BECLOMETASONE DIPROPIONATE) [Concomitant]
  6. RISPERDAL [Concomitant]
  7. VITAMIN B            (VITAMIN B) [Concomitant]

REACTIONS (2)
  - MEDICATION ERROR [None]
  - SEROTONIN SYNDROME [None]
